FAERS Safety Report 5243545-7 (Version None)
Quarter: 2007Q1

REPORT INFORMATION
  Report Type: 
  Country: None (occurrence: None)
  Receive Date: 20070222
  Receipt Date: 20070208
  Transmission Date: 20070707
  Serious: Yes (Other)
  Sender: FDA-Public Use
  Company Number: PHBS2007JP02685

PATIENT

DRUGS (1)
  1. DIOVAN [Suspect]
     Route: 064

REACTIONS (5)
  - DRUG EXPOSURE DURING PREGNANCY [None]
  - POLYURIA [None]
  - PULMONARY HYPOPLASIA [None]
  - SKULL MALFORMATION [None]
  - WRIST DEFORMITY [None]
